FAERS Safety Report 6291594-2 (Version None)
Quarter: 2009Q4

REPORT INFORMATION
  Report Type: 
  Country: None (occurrence: None)
  Receive Date: 20090730
  Receipt Date: 20090723
  Transmission Date: 20100525
  Serious: Yes (Hospitalization)
  Sender: FDA-Public Use
  Company Number: FR-WYE-G04104209

PATIENT
  Sex: Male
  Weight: 9.84 kg

DRUGS (7)
  1. ADVIL LIQUI-GELS [Suspect]
     Indication: OTITIS MEDIA
     Dosage: UNKNOWN
     Route: 048
     Dates: start: 20090508, end: 20090510
  2. ADVIL LIQUI-GELS [Suspect]
     Indication: PYREXIA
  3. CELESTENE [Concomitant]
     Dosage: ONE DOSE
     Route: 048
     Dates: start: 20090506, end: 20090508
  4. BECOTIDE [Concomitant]
     Dosage: UNKNOWN
     Route: 048
     Dates: start: 20090506, end: 20090508
  5. DOLIPRANE [Concomitant]
     Indication: PYREXIA
     Dosage: UNKNOWN
     Route: 048
     Dates: start: 20090506, end: 20090508
  6. ORELOX [Concomitant]
     Indication: OTITIS MEDIA
     Dosage: UNKNOWN
     Route: 048
     Dates: start: 20090508
  7. VENTOLIN [Concomitant]
     Dosage: UNKNOWN
     Route: 048
     Dates: start: 20090506, end: 20090508

REACTIONS (9)
  - CONDITION AGGRAVATED [None]
  - DIET REFUSAL [None]
  - DRUG INEFFECTIVE [None]
  - INFLAMMATION [None]
  - LOBAR PNEUMONIA [None]
  - OTITIS MEDIA [None]
  - PLEURAL EFFUSION [None]
  - PNEUMONIA PNEUMOCOCCAL [None]
  - SPUTUM PURULENT [None]
